FAERS Safety Report 18956347 (Version 2)
Quarter: 2021Q1

REPORT INFORMATION
  Report Type: Spontaneous
  Country: US (occurrence: US)
  Receive Date: 20210302
  Receipt Date: 20210316
  Transmission Date: 20210420
  Serious: Yes (Hospitalization, Other)
  Sender: FDA-Public Use
  Company Number: US-AUROBINDO-AUR-APL-2021-007606

PATIENT
  Age: 52 Year
  Sex: Male

DRUGS (2)
  1. VERAPAMIL  HYDROCHLORIDE INJECTION [Suspect]
     Active Substance: VERAPAMIL HYDROCHLORIDE
     Indication: ANTERIOR SPINAL ARTERY SYNDROME
     Dosage: 5 MILLIGRAM
     Route: 013
  2. EPTIFIBATIDE INJECTION [Suspect]
     Active Substance: EPTIFIBATIDE
     Indication: ANTERIOR SPINAL ARTERY SYNDROME
     Dosage: 6 MILLIGRAM
     Route: 013

REACTIONS (3)
  - Product use in unapproved indication [Unknown]
  - Spinal subarachnoid haemorrhage [Unknown]
  - Product use issue [Unknown]
